FAERS Safety Report 10435617 (Version 5)
Quarter: 2015Q2

REPORT INFORMATION
  Report Type: Report from Study
  Country: DE (occurrence: DE)
  Receive Date: 20140908
  Receipt Date: 20150505
  Transmission Date: 20150821
  Serious: Yes (Hospitalization)
  Sender: FDA-Public Use
  Company Number: DE-ROCHE-1297932

PATIENT
  Age: 65 Year
  Sex: Male
  Weight: 100 kg

DRUGS (43)
  1. AVASTIN [Suspect]
     Active Substance: BEVACIZUMAB
     Route: 042
     Dates: start: 20140707
  2. LEUCOVORIN [Concomitant]
     Active Substance: LEUCOVORIN
     Dosage: ON D1 AND D2 OF EACH CYCLE, TOTAL 12 CYCLES
     Route: 042
     Dates: end: 20140911
  3. 5-FU [Concomitant]
     Active Substance: FLUOROURACIL
     Route: 040
     Dates: start: 20140512, end: 20140708
  4. 5-FU [Concomitant]
     Active Substance: FLUOROURACIL
     Route: 042
     Dates: start: 20140512, end: 20140708
  5. FORTECORTIN [Concomitant]
     Active Substance: DEXAMETHASONE
     Indication: PREMEDICATION
     Route: 042
  6. LOSARTAN [Concomitant]
     Active Substance: LOSARTAN
     Route: 048
  7. OXALIPLATIN. [Concomitant]
     Active Substance: OXALIPLATIN
     Route: 042
     Dates: start: 20140804, end: 20140902
  8. 5-FU [Concomitant]
     Active Substance: FLUOROURACIL
     Indication: COLON CANCER METASTATIC
     Route: 040
     Dates: start: 20130128, end: 20130129
  9. METFORMIN [Concomitant]
     Active Substance: METFORMIN HYDROCHLORIDE
     Indication: DIABETES MELLITUS
     Dosage: 500 MG
     Route: 065
  10. METFORMIN [Concomitant]
     Active Substance: METFORMIN HYDROCHLORIDE
     Route: 048
  11. GLIMEPIRIDE. [Concomitant]
     Active Substance: GLIMEPIRIDE
     Indication: DIABETES MELLITUS
     Route: 048
  12. ONDANSETRON [Concomitant]
     Active Substance: ONDANSETRON
     Route: 065
     Dates: end: 201310
  13. FOLIC ACID. [Concomitant]
     Active Substance: FOLIC ACID
     Indication: COLORECTAL CANCER
     Route: 065
     Dates: start: 20130128, end: 20130129
  14. AVASTIN [Suspect]
     Active Substance: BEVACIZUMAB
     Dosage: DATE OF LAST DOSE PRIOR TO SAE- 18/DEC/2013
     Route: 042
     Dates: start: 20140120
  15. AVASTIN [Suspect]
     Active Substance: BEVACIZUMAB
     Route: 042
     Dates: start: 20140512
  16. OXALIPLATIN. [Concomitant]
     Active Substance: OXALIPLATIN
     Route: 065
     Dates: start: 20130225, end: 20130715
  17. LEUCOVORIN [Concomitant]
     Active Substance: LEUCOVORIN
     Indication: COLON CANCER METASTATIC
     Dosage: 12 CYCLES IN TOTAL
     Route: 042
     Dates: start: 20130128, end: 20130129
  18. LEUCOVORIN [Concomitant]
     Active Substance: LEUCOVORIN
     Dosage: ON D1 AND D2 OF EACH CYCLE?DATE OF LAST DOSE PRIOR TO SAE- 18/DEC/2013
     Route: 042
     Dates: start: 20140120
  19. 5-FU [Concomitant]
     Active Substance: FLUOROURACIL
     Route: 042
     Dates: start: 20130128, end: 20130129
  20. 5-FU [Concomitant]
     Active Substance: FLUOROURACIL
     Route: 042
     Dates: start: 20131104, end: 20131119
  21. 5-FU [Concomitant]
     Active Substance: FLUOROURACIL
     Route: 042
     Dates: start: 20140910, end: 20140911
  22. AVASTIN [Suspect]
     Active Substance: BEVACIZUMAB
     Route: 065
     Dates: start: 20140804
  23. OXALIPLATIN. [Concomitant]
     Active Substance: OXALIPLATIN
     Route: 065
     Dates: start: 20130128, end: 20130211
  24. 5-FU [Concomitant]
     Active Substance: FLUOROURACIL
     Route: 042
     Dates: start: 20140804, end: 20140819
  25. FOLIC ACID. [Concomitant]
     Active Substance: FOLIC ACID
     Route: 065
     Dates: start: 20130211, end: 20140708
  26. LEUCOVORIN [Concomitant]
     Active Substance: LEUCOVORIN
     Dosage: ON D1 AND D2 OF EACH CYCLE
     Route: 042
     Dates: start: 20130211, end: 20130924
  27. 5-FU [Concomitant]
     Active Substance: FLUOROURACIL
     Indication: COLORECTAL CANCER
     Route: 040
     Dates: start: 20130211, end: 20130924
  28. 5-FU [Concomitant]
     Active Substance: FLUOROURACIL
     Route: 040
     Dates: start: 20140804, end: 20140911
  29. 5-FU [Concomitant]
     Active Substance: FLUOROURACIL
     Route: 042
     Dates: start: 20130211, end: 20130924
  30. 5-FU [Concomitant]
     Active Substance: FLUOROURACIL
     Route: 042
     Dates: start: 20131216, end: 20140121
  31. LOSARTAN [Concomitant]
     Active Substance: LOSARTAN
     Indication: HYPERTENSION
     Route: 048
  32. AVASTIN [Suspect]
     Active Substance: BEVACIZUMAB
     Indication: COLON CANCER METASTATIC
     Dosage: 12 CYCLES IN TOTAL
     Route: 042
     Dates: start: 20130128
  33. AVASTIN [Suspect]
     Active Substance: BEVACIZUMAB
     Route: 042
     Dates: end: 20130923
  34. 5-FU [Concomitant]
     Active Substance: FLUOROURACIL
     Route: 040
     Dates: start: 20131104, end: 20140415
  35. KEVATRIL [Concomitant]
     Active Substance: GRANISETRON HYDROCHLORIDE
     Indication: PREMEDICATION
     Route: 042
  36. AVASTIN [Suspect]
     Active Substance: BEVACIZUMAB
     Dosage: DATE OF LAST DOSE PRIOR TO SAE- 18/DEC/2013
     Route: 042
     Dates: start: 20131021
  37. OXALIPLATIN. [Concomitant]
     Active Substance: OXALIPLATIN
     Route: 042
     Dates: start: 20140910, end: 20140911
  38. LYRICA [Concomitant]
     Active Substance: PREGABALIN
     Indication: POLYNEUROPATHY
     Route: 048
  39. MIRTAZAPIN [Concomitant]
     Active Substance: MIRTAZAPINE
     Route: 065
     Dates: end: 201310
  40. AVASTIN [Suspect]
     Active Substance: BEVACIZUMAB
     Route: 042
     Dates: start: 20140902
  41. OXALIPLATIN. [Concomitant]
     Active Substance: OXALIPLATIN
     Indication: COLON CANCER METASTATIC
     Dosage: 12 CYCLES IN TOTAL?DATE OF LAST DOSE PRIOR TO SAE- 18/DEC/2013
     Route: 042
     Dates: start: 201301, end: 2013
  42. LEUCOVORIN [Concomitant]
     Active Substance: LEUCOVORIN
     Dosage: ON D1 AND D2 OF EACH CYCLE?DATE OF LAST DOSE PRIOR TO SAE- 18/DEC/2013
     Route: 042
     Dates: start: 20131021
  43. 5-FU [Concomitant]
     Active Substance: FLUOROURACIL
     Route: 042
     Dates: start: 20140224, end: 20140415

REACTIONS (11)
  - Rhinitis [Recovered/Resolved]
  - Urinary tract infection [Recovered/Resolved]
  - Device related infection [Not Recovered/Not Resolved]
  - Nausea [Recovered/Resolved]
  - Febrile infection [Recovered/Resolved]
  - Headache [Recovered/Resolved]
  - Dysarthria [Recovered/Resolved]
  - Hyperhidrosis [Recovered/Resolved]
  - Dyspnoea [Recovered/Resolved]
  - Pyrexia [Unknown]
  - Pyrexia [Unknown]

NARRATIVE: CASE EVENT DATE: 20131004
